FAERS Safety Report 11360576 (Version 1)
Quarter: 2015Q3

REPORT INFORMATION
  Report Type: Report from Study
  Country: US (occurrence: US)
  Receive Date: 20150810
  Receipt Date: 20150810
  Transmission Date: 20151125
  Serious: Yes (Hospitalization)
  Sender: FDA-Public Use
  Company Number: PHEH2014US025594

PATIENT
  Age: 41 Year
  Sex: Male

DRUGS (5)
  1. EXTAVIA [Suspect]
     Active Substance: INTERFERON BETA-1B
     Dosage: 0.25 MG/ML, QOD
     Route: 058
     Dates: start: 201210
  2. EXTAVIA [Suspect]
     Active Substance: INTERFERON BETA-1B
     Indication: MULTIPLE SCLEROSIS
     Dosage: UNK (FOR ONE MONTH)
     Route: 058
     Dates: start: 201207
  3. EXTAVIA [Suspect]
     Active Substance: INTERFERON BETA-1B
     Dosage: 0.25 MG/ML, QOD (1 ML)
     Route: 058
     Dates: start: 201305
  4. EXTAVIA [Suspect]
     Active Substance: INTERFERON BETA-1B
     Dosage: 0.25 MG/ML, QOD (1 ML)
     Route: 058
     Dates: start: 201309
  5. VITAMIN D [Concomitant]
     Active Substance: CHOLECALCIFEROL
     Indication: VITAMIN D DEFICIENCY
     Dosage: UNK
     Route: 065

REACTIONS (12)
  - Visual acuity reduced [Recovering/Resolving]
  - Sensory disturbance [Recovering/Resolving]
  - Multiple sclerosis relapse [Recovering/Resolving]
  - Loss of consciousness [Recovering/Resolving]
  - Eye disorder [Recovering/Resolving]
  - Temperature intolerance [Recovering/Resolving]
  - Dizziness [Recovering/Resolving]
  - Weight decreased [Unknown]
  - Fall [Recovering/Resolving]
  - Nausea [Recovering/Resolving]
  - Muscle injury [Unknown]
  - Injection site pain [Recovered/Resolved]

NARRATIVE: CASE EVENT DATE: 201208
